FAERS Safety Report 7350785-X (Version None)
Quarter: 2011Q1

REPORT INFORMATION
  Report Type: 
  Country: None (occurrence: None)
  Receive Date: 20110314
  Receipt Date: 20110308
  Transmission Date: 20110831
  Serious: Yes (Other)
  Sender: FDA-Public Use
  Company Number: US-CTI_01326_2011

PATIENT
  Sex: Male

DRUGS (2)
  1. FACTIVE [Suspect]
     Indication: PNEUMONIA
     Dosage: DF
  2. FACTIVE [Suspect]
     Indication: BRONCHITIS CHRONIC
     Dosage: DF

REACTIONS (1)
  - ADVERSE DRUG REACTION [None]
